FAERS Safety Report 4535083-1 (Version None)
Quarter: 2004Q4

REPORT INFORMATION
  Report Type: 
  Country: None (occurrence: None)
  Receive Date: 20041222
  Receipt Date: 20041213
  Transmission Date: 20050328
  Serious: Yes (Death)
  Sender: FDA-Public Use
  Company Number: FR-ROCHE-389156

PATIENT
  Age: 30 Year
  Sex: Male
  Weight: 48 kg

DRUGS (4)
  1. CELLCEPT [Suspect]
     Indication: DRUG USE FOR UNKNOWN INDICATION
     Route: 048
     Dates: start: 20040215, end: 20041004
  2. CRYPTAZ [Suspect]
     Route: 048
     Dates: start: 20040930
  3. ZOVIRAX [Suspect]
     Indication: DRUG USE FOR UNKNOWN INDICATION
     Route: 065
     Dates: end: 20041004
  4. SOLU-MEDROL [Suspect]
     Indication: DRUG USE FOR UNKNOWN INDICATION
     Route: 065

REACTIONS (12)
  - ASCITES [None]
  - ASPIRATION BONE MARROW ABNORMAL [None]
  - AZOTAEMIA [None]
  - COMA [None]
  - CONFUSIONAL STATE [None]
  - DIARRHOEA [None]
  - HAEMOLYTIC ANAEMIA [None]
  - MALNUTRITION [None]
  - RENAL FAILURE CHRONIC [None]
  - SCLERODERMA [None]
  - SHOCK [None]
  - THROMBOCYTOPENIA [None]
